FAERS Safety Report 5087629-5 (Version None)
Quarter: 2006Q3

REPORT INFORMATION
  Report Type: 
  Country: None (occurrence: None)
  Receive Date: 20060821
  Receipt Date: 20060808
  Transmission Date: 20061208
  Serious: Yes (Other)
  Sender: FDA-Public Use
  Company Number: 2006097160

PATIENT
  Sex: Female
  Weight: 65.7716 kg

DRUGS (4)
  1. TIKOSYN [Suspect]
     Indication: ATRIAL FIBRILLATION
     Dosage: 500 MCG (250 MCG, 2 IN 1 D)
     Dates: start: 20051101
  2. COUMADIN [Suspect]
     Indication: CARDIAC ABLATION
     Dates: start: 20060101, end: 20060802
  3. ASPIRIN [Suspect]
     Indication: DRUG USE FOR UNKNOWN INDICATION
     Dosage: 1 DF (DAILY)
     Dates: end: 20060101
  4. SOY PRODUCT (ALL OTHER NON-THERAPEUTIC PRODUCTS) [Concomitant]

REACTIONS (13)
  - ABDOMINAL DISTENSION [None]
  - ATRIAL FIBRILLATION [None]
  - BACK PAIN [None]
  - CHEST PAIN [None]
  - CHROMATURIA [None]
  - CONDITION AGGRAVATED [None]
  - FATIGUE [None]
  - HYPERHIDROSIS [None]
  - INTERNATIONAL NORMALISED RATIO INCREASED [None]
  - MUSCLE SPASMS [None]
  - MUSCLE TWITCHING [None]
  - THIRST [None]
  - WEIGHT INCREASED [None]
